FAERS Safety Report 5126195-2 (Version None)
Quarter: 2006Q4

REPORT INFORMATION
  Report Type: 
  Country: None (occurrence: None)
  Receive Date: 20061012
  Receipt Date: 20061006
  Transmission Date: 20070319
  Serious: Yes (Hospitalization)
  Sender: FDA-Public Use
  Company Number: US-ROXANE LABORATORIES, INC-2006-BP-11720RO

PATIENT
  Sex: Female

DRUGS (5)
  1. DEXAMETHASONE TABLETS USP, 4 MG [Suspect]
     Indication: BRAIN NEOPLASM
     Dosage: 4 MG QID
     Route: 048
     Dates: start: 20050501, end: 20050801
  2. ZOLOFT [Concomitant]
     Route: 048
     Dates: end: 20060101
  3. VESICARE [Concomitant]
     Indication: INCONTINENCE
  4. FOSAMAX [Concomitant]
     Dosage: 70 MG PER WEEK
     Route: 048
     Dates: start: 20040101
  5. IRON [Concomitant]
     Indication: ANAEMIA

REACTIONS (1)
  - DEEP VEIN THROMBOSIS [None]
